FAERS Safety Report 19346810 (Version 1)
Quarter: 2021Q2

REPORT INFORMATION
  Report Type: Spontaneous
  Country: US (occurrence: US)
  Receive Date: 20210531
  Receipt Date: 20210531
  Transmission Date: 20210717
  Serious: Yes (Disabling, Other)
  Sender: FDA-Public Use
  Company Number: US-PURDUE-USA-2020-0204880

PATIENT

DRUGS (2)
  1. OXYCONTIN [Suspect]
     Active Substance: OXYCODONE HYDROCHLORIDE
     Indication: PAIN
     Dosage: UNKNOWN
     Route: 048
  2. MS CONTIN [Suspect]
     Active Substance: MORPHINE SULFATE
     Indication: PAIN
     Dosage: UNKNOWN
     Route: 048

REACTIONS (13)
  - Insomnia [Unknown]
  - Drug dependence [Unknown]
  - Mood swings [Unknown]
  - Pain [Unknown]
  - Headache [Unknown]
  - Loss of personal independence in daily activities [Unknown]
  - Overdose [Unknown]
  - Memory impairment [Unknown]
  - Cognitive disorder [Unknown]
  - Paranoia [Unknown]
  - Confusional state [Unknown]
  - Emotional distress [Unknown]
  - Anxiety [Unknown]
